FAERS Safety Report 4989711-7 (Version None)
Quarter: 2006Q2

REPORT INFORMATION
  Report Type: 
  Country: None (occurrence: None)
  Receive Date: 20060501
  Receipt Date: 20060419
  Transmission Date: 20061013
  Serious: Yes (Hospitalization)
  Sender: FDA-Public Use
  Company Number: 2006BI001426

PATIENT
  Age: 43 Year
  Sex: Male

DRUGS (9)
  1. AVONEX [Suspect]
     Indication: MULTIPLE SCLEROSIS
     Dosage: 30 UG QW IM
     Route: 030
     Dates: start: 20000823, end: 20030806
  2. AVONEX [Suspect]
     Indication: MULTIPLE SCLEROSIS
     Dosage: 30 UG QW IM
     Route: 030
     Dates: start: 20030813
  3. BACLOFEN [Concomitant]
  4. HYDROCHLOROTHIAZIDE [Concomitant]
  5. TOPROL-XL [Concomitant]
  6. DARVOCET [Concomitant]
  7. ACLOVATE [Concomitant]
  8. CARDIZEM [Concomitant]
  9. XANAX [Concomitant]

REACTIONS (17)
  - ATRIOVENTRICULAR BLOCK FIRST DEGREE [None]
  - CARDIOMEGALY [None]
  - CHEST PAIN [None]
  - COLD SWEAT [None]
  - DYSPNOEA EXERTIONAL [None]
  - ELECTROCARDIOGRAM PR PROLONGATION [None]
  - FATIGUE [None]
  - HEADACHE [None]
  - NASAL CONGESTION [None]
  - NEUTROPENIA [None]
  - PALPITATIONS [None]
  - PLEURAL EFFUSION [None]
  - PNEUMONIA [None]
  - SINUS TACHYCARDIA [None]
  - THROMBOCYTOPENIA [None]
  - VIRAL INFECTION [None]
  - WHEEZING [None]
